FAERS Safety Report 9642108 (Version 2)
Quarter: 2013Q4

REPORT INFORMATION
  Report Type: Report from Study
  Country: BR (occurrence: BR)
  Receive Date: 20131023
  Receipt Date: 20131119
  Transmission Date: 20140711
  Serious: Yes (Hospitalization)
  Sender: FDA-Public Use
  Company Number: BR-ROCHE-1292226

PATIENT
  Age: 68 Year
  Sex: Male
  Weight: 80 kg

DRUGS (9)
  1. ACTEMRA [Suspect]
     Indication: RHEUMATOID ARTHRITIS
     Route: 042
     Dates: start: 20130801
  2. XARELTO [Concomitant]
  3. LYRICA [Concomitant]
  4. TRAMAL [Concomitant]
  5. PURAN T4 [Concomitant]
  6. PRESSAT [Concomitant]
  7. HIGROTON [Concomitant]
  8. PREDSIM [Concomitant]
  9. ALENDRONATE [Concomitant]

REACTIONS (3)
  - Infectious pleural effusion [Unknown]
  - Subcutaneous emphysema [Unknown]
  - Memory impairment [Unknown]
